FAERS Safety Report 7029690-4 (Version None)
Quarter: 2010Q4

REPORT INFORMATION
  Report Type: 
  Country: None (occurrence: None)
  Receive Date: 20101005
  Receipt Date: 20100930
  Transmission Date: 20110411
  Serious: Yes (Hospitalization)
  Sender: FDA-Public Use
  Company Number: US-GILEAD-2010-0030899

PATIENT
  Sex: Female

DRUGS (7)
  1. TRUVADA [Suspect]
     Indication: HIV INFECTION
     Route: 048
  2. RALTEGRAVIR [Suspect]
     Indication: HIV INFECTION
     Route: 048
     Dates: start: 20091014
  3. LEXAPRO [Concomitant]
     Indication: BIPOLAR I DISORDER
  4. SEROQUEL [Concomitant]
     Indication: BIPOLAR I DISORDER
  5. DEPAKOTE [Concomitant]
     Indication: BIPOLAR I DISORDER
  6. RONDEC [Concomitant]
     Indication: SEASONAL ALLERGY
  7. IBUPROFEN [Concomitant]
     Indication: PAIN

REACTIONS (1)
  - ANAPHYLACTIC SHOCK [None]
